FAERS Safety Report 6745609-5 (Version None)
Quarter: 2010Q2

REPORT INFORMATION
  Report Type: 
  Country: None (occurrence: None)
  Receive Date: 20100528
  Receipt Date: 20100517
  Transmission Date: 20101027
  Serious: Yes (Other)
  Sender: FDA-Public Use
  Company Number: US-SOLVAY-00210003237

PATIENT
  Age: 72 Year
  Sex: Male
  Weight: 71.818 kg

DRUGS (8)
  1. FOSAMAX [Concomitant]
     Indication: OSTEOPOROSIS
     Dosage: DAILY DOSE:  UNKNOWN
     Route: 048
  2. TERAZOSIN HCL [Concomitant]
     Indication: PROSTATIC DISORDER
     Dosage: DAILY DOSE:  UNKNOWN
     Route: 048
     Dates: start: 20091201
  3. FLOMAX [Suspect]
     Indication: PROSTATIC DISORDER
     Dosage: DAILY DOSE:  UNKNOWN
     Route: 048
     Dates: end: 20091201
  4. ANDROGEL [Suspect]
     Indication: BLOOD TESTOSTERONE DECREASED
     Dosage: DAILY DOSE: 5 GRAM(S)
     Route: 062
     Dates: start: 20000101, end: 20060101
  5. ANDROGEL [Suspect]
     Dosage: DAILY DOSE: 10 GRAM(S)
     Route: 062
     Dates: start: 20060101
  6. ANDROGEL [Suspect]
     Dosage: DAILY DOSE: 15 GRAM(S)
     Route: 062
  7. ANDROGEL [Suspect]
     Dosage: DAILY DOSE: 10 GRAM(S)
     Route: 062
     Dates: end: 20100514
  8. ANDROGEL [Suspect]
     Dosage: DAILY DOSE: 15 GRAM(S), AS USED: 3 PACKETS
     Route: 062
     Dates: start: 20100515

REACTIONS (3)
  - BLOOD TESTOSTERONE ABNORMAL [None]
  - CATARACT [None]
  - FLOPPY IRIS SYNDROME [None]
